FAERS Safety Report 24321258 (Version 1)
Quarter: 2024Q3

REPORT INFORMATION
  Report Type: Other
  Country: NL (occurrence: NL)
  Receive Date: 20240916
  Receipt Date: 20240916
  Transmission Date: 20241017
  Serious: Yes (Other)
  Sender: Waylis
  Company Number: NL-WT-2024-37658804P1

PATIENT
  Age: 35 Year

DRUGS (1)
  1. THIOGUANINE [Suspect]
     Active Substance: THIOGUANINE
     Indication: Inflammatory bowel disease
     Route: 065

REACTIONS (2)
  - Cytomegalovirus hepatitis [Unknown]
  - Off label use [Unknown]
